FAERS Safety Report 5113782-0 (Version None)
Quarter: 2006Q3

REPORT INFORMATION
  Report Type: 
  Country: None (occurrence: None)
  Receive Date: 20060925
  Receipt Date: 20060919
  Transmission Date: 20061208
  Serious: Yes (Other)
  Sender: FDA-Public Use
  Company Number: US-AVENTIS-200617884US

PATIENT
  Age: 45 Year
  Sex: Female

DRUGS (6)
  1. LANTUS [Suspect]
     Indication: DIABETES MELLITUS NON-INSULIN-DEPENDENT
  2. OPTICLIK (INSULIN INJECTION PEN) [Suspect]
     Indication: DIABETES MELLITUS NON-INSULIN-DEPENDENT
     Dates: start: 20060901
  3. PROTONIX [Concomitant]
     Dosage: DOSE: UNK
  4. METOPROLOL [Concomitant]
     Dosage: DOSE: UNK
  5. CLONIDINE [Concomitant]
     Dosage: DOSE: UNK
  6. SYNTHROID [Concomitant]
     Dosage: DOSE: UNK

REACTIONS (3)
  - BLINDNESS [None]
  - BLOOD GLUCOSE INCREASED [None]
  - RENAL FAILURE [None]
